FAERS Safety Report 19075315 (Version 1)
Quarter: 2021Q1

REPORT INFORMATION
  Report Type: Spontaneous
  Country: US (occurrence: US)
  Receive Date: 20210330
  Receipt Date: 20210330
  Transmission Date: 20210420
  Serious: No
  Sender: FDA-Public Use
  Company Number: US-THERATECHNOLOGIES INC.-2021-THE-TES-000082

PATIENT
  Age: 60 Year
  Sex: Male

DRUGS (4)
  1. VACCINES [Concomitant]
     Active Substance: UNSPECIFIED INGREDIENT
     Dosage: UNK, SINGLE
     Dates: start: 20210107, end: 20210107
  2. EGRIFTA SV [Suspect]
     Active Substance: TESAMORELIN ACETATE
     Indication: PRODUCT USED FOR UNKNOWN INDICATION
     Dosage: UNK
     Route: 058
     Dates: start: 20210117
  3. VACCINES [Concomitant]
     Active Substance: UNSPECIFIED INGREDIENT
     Indication: COVID-19 PROPHYLAXIS
     Dosage: UNK, SINGLE
     Dates: start: 20201219, end: 20201219
  4. EGRIFTA SV [Suspect]
     Active Substance: TESAMORELIN ACETATE
     Dosage: UNK
     Route: 058
     Dates: start: 202011, end: 20210107

REACTIONS (4)
  - Back pain [Recovered/Resolved]
  - Pollakiuria [Recovered/Resolved]
  - Product dose omission issue [Recovered/Resolved]
  - Nephrolithiasis [Recovered/Resolved]

NARRATIVE: CASE EVENT DATE: 20210107
